FAERS Safety Report 8801777 (Version 2)
Quarter: 2012Q4

REPORT INFORMATION
  Report Type: Report from Study
  Country: GB (occurrence: GB)
  Receive Date: 20120921
  Receipt Date: 20121207
  Transmission Date: 20130627
  Serious: Yes (Hospitalization, Other)
  Sender: FDA-Public Use
  Company Number: GB-ROCHE-1125336

PATIENT
  Age: 61 Year
  Sex: Male
  Weight: 97 kg

DRUGS (2)
  1. RITUXIMAB [Suspect]
     Indication: RHEUMATOID ARTHRITIS
     Route: 065
     Dates: start: 20090914
  2. METHOTREXATE [Concomitant]

REACTIONS (5)
  - Hepatic cirrhosis [Unknown]
  - Encephalopathy [Unknown]
  - Haematemesis [Unknown]
  - Confusional state [Unknown]
  - Splenomegaly [Unknown]
